FAERS Safety Report 9192853 (Version 1)
Quarter: 2013Q1

REPORT INFORMATION
  Report Type: Spontaneous
  Country: US (occurrence: US)
  Receive Date: 20130327
  Receipt Date: 20130327
  Transmission Date: 20140127
  Serious: No
  Sender: FDA-Public Use
  Company Number: US-009507513-1303USA012514

PATIENT
  Sex: Male

DRUGS (2)
  1. PEGINTRON [Suspect]
     Indication: HEPATITIS C
     Dosage: REDIPEN UNK
     Dates: start: 20130221
  2. REBETOL [Suspect]
     Indication: HEPATITIS C
     Dosage: UNK
     Dates: start: 20130221

REACTIONS (6)
  - Panic attack [Unknown]
  - Anxiety [Unknown]
  - Insomnia [Unknown]
  - Pollakiuria [Unknown]
  - Malaise [Unknown]
  - Diarrhoea [Unknown]
